FAERS Safety Report 7012678-7 (Version None)
Quarter: 2010Q3

REPORT INFORMATION
  Report Type: 
  Country: None (occurrence: None)
  Receive Date: 20100924
  Receipt Date: 20100916
  Transmission Date: 20110219
  Serious: Yes (Other)
  Sender: FDA-Public Use
  Company Number: AT-ROCHE-727721

PATIENT
  Sex: Male

DRUGS (2)
  1. AVASTIN [Suspect]
     Route: 042
     Dates: start: 20080521, end: 20090528
  2. CAMPTOSAR [Suspect]
     Route: 042
     Dates: start: 20080521, end: 20080911

REACTIONS (1)
  - MUSCULOSKELETAL PAIN [None]
